FAERS Safety Report 4756570-7 (Version None)
Quarter: 2005Q3

REPORT INFORMATION
  Report Type: 
  Country: None (occurrence: None)
  Receive Date: 20050830
  Receipt Date: 20050407
  Transmission Date: 20060218
  Serious: Yes (Hospitalization)
  Sender: FDA-Public Use
  Company Number: 200511289FR

PATIENT
  Age: 79 Year
  Sex: Male
  Weight: 75 kg

DRUGS (5)
  1. LASILIX [Suspect]
     Route: 048
     Dates: start: 20040315
  2. PREVISCAN [Suspect]
     Route: 048
     Dates: start: 20040315, end: 20050225
  3. MEDIATENSYL [Suspect]
     Route: 048
     Dates: start: 20040315
  4. ZESTRIL [Suspect]
     Route: 048
     Dates: start: 20040315, end: 20050228
  5. DIFFU K [Concomitant]
     Route: 048
     Dates: start: 20050207

REACTIONS (3)
  - ANTINUCLEAR ANTIBODY POSITIVE [None]
  - AUTOIMMUNE THROMBOCYTOPENIA [None]
  - THROMBOCYTOPENIA [None]
